FAERS Safety Report 24269531 (Version 1)
Quarter: 2024Q3

REPORT INFORMATION
  Report Type: Spontaneous
  Country: US (occurrence: None)
  Receive Date: 20240830
  Receipt Date: 20240830
  Transmission Date: 20241017
  Serious: Yes (Other)
  Sender: ASTRAZENECA
  Company Number: 2024A192162

PATIENT
  Age: 25945 Day
  Sex: Female

DRUGS (1)
  1. FASENRA [Suspect]
     Active Substance: BENRALIZUMAB
     Indication: Asthma
     Route: 058

REACTIONS (6)
  - Fall [Unknown]
  - Upper limb fracture [Unknown]
  - Joint injury [Unknown]
  - Contusion [Unknown]
  - Joint swelling [Unknown]
  - Humerus fracture [Unknown]

NARRATIVE: CASE EVENT DATE: 20240812
